FAERS Safety Report 5229034-4 (Version None)
Quarter: 2007Q1

REPORT INFORMATION
  Report Type: 
  Country: None (occurrence: None)
  Receive Date: 20061201
  Receipt Date: 20060918
  Transmission Date: 20070707
  Serious: No
  Sender: FDA-Public Use
  Company Number: US200609004464

PATIENT
  Age: 47 Year
  Sex: Female

DRUGS (5)
  1. CYMBALTA [Suspect]
     Indication: ANXIETY
     Dosage: 30 MG
     Dates: start: 20060915
  2. COUMADIN [Concomitant]
  3. ZOCOR [Concomitant]
  4. LORAZEPAM [Concomitant]
  5. LEXAPRO /USA/ (ESCITALOPRAM) [Concomitant]

REACTIONS (3)
  - HEADACHE [None]
  - INSOMNIA [None]
  - PAIN [None]
